FAERS Safety Report 16008685 (Version 1)
Quarter: 2019Q1

REPORT INFORMATION
  Report Type: Spontaneous
  Country: FR (occurrence: FR)
  Receive Date: 20190226
  Receipt Date: 20190226
  Transmission Date: 20190418
  Serious: Yes (Other)
  Sender: FDA-Public Use
  Company Number: FR-ALLERGAN-1907476US

PATIENT
  Sex: Male

DRUGS (3)
  1. MIANSERIN [Concomitant]
     Active Substance: MIANSERIN
  2. VIMPAT [Concomitant]
     Active Substance: LACOSAMIDE
  3. MEMANTINE HCL - BP [Suspect]
     Active Substance: MEMANTINE
     Indication: DEMENTIA ALZHEIMER^S TYPE
     Dosage: 20 MG, QD
     Route: 048
     Dates: start: 201612

REACTIONS (1)
  - Dysphagia [Not Recovered/Not Resolved]
